FAERS Safety Report 8565974-6 (Version None)
Quarter: 2012Q3

REPORT INFORMATION
  Report Type: 
  Country: None (occurrence: None)
  Receive Date: 20120803
  Receipt Date: 20111021
  Transmission Date: 20120928
  Serious: No
  Sender: FDA-Public Use
  Company Number: US-ABBOTT-11P-163-0842198-00

PATIENT
  Sex: Female
  Weight: 88.53 kg

DRUGS (16)
  1. ACIPHEX [Concomitant]
     Indication: PRODUCT USED FOR UNKNOWN INDICATION
     Route: 048
  2. OSTEOBIFLEX WITH D3 [Concomitant]
     Indication: PRODUCT USED FOR UNKNOWN INDICATION
     Route: 048
  3. JANUVIA [Concomitant]
     Indication: DECREASED APPETITE
     Route: 048
  4. VALTERNA [Concomitant]
     Indication: PRODUCT USED FOR UNKNOWN INDICATION
     Dosage: 150/160 MG
     Route: 048
  5. LIPITOR [Concomitant]
     Indication: PRODUCT USED FOR UNKNOWN INDICATION
     Route: 048
  6. CALCIUM 600 MG WITH D3 [Concomitant]
     Indication: PRODUCT USED FOR UNKNOWN INDICATION
     Route: 048
  7. VIT C [Concomitant]
     Indication: PRODUCT USED FOR UNKNOWN INDICATION
     Route: 048
  8. ASPIRIN [Concomitant]
     Indication: PRODUCT USED FOR UNKNOWN INDICATION
     Dosage: AT BEDTIME
     Route: 048
  9. CELEBREX [Concomitant]
     Indication: PRODUCT USED FOR UNKNOWN INDICATION
     Dosage: AT BEDTIME
     Route: 048
  10. LEVOCETIRIZINE DIHYDROCHLORIDE [Concomitant]
     Indication: PRODUCT USED FOR UNKNOWN INDICATION
     Route: 048
  11. ULTRAM [Concomitant]
     Indication: ARTHRALGIA
  12. MAGNESIUM [Concomitant]
     Indication: PRODUCT USED FOR UNKNOWN INDICATION
  13. VENLAFAXINE HCL [Concomitant]
     Indication: HOT FLUSH
     Dosage: AT BEDTIME
     Route: 048
  14. NIASPAN [Suspect]
     Indication: LOW DENSITY LIPOPROTEIN INCREASED
     Dosage: AT BEDTIME
     Route: 048
     Dates: start: 20110719
  15. NEUROPATHY B [Concomitant]
     Indication: PRODUCT USED FOR UNKNOWN INDICATION
  16. POTASSIUM CHLORIDE [Concomitant]
     Indication: PRODUCT USED FOR UNKNOWN INDICATION

REACTIONS (4)
  - PAIN OF SKIN [None]
  - CONTUSION [None]
  - RASH PRURITIC [None]
  - PRURITUS GENERALISED [None]
